FAERS Safety Report 9135928 (Version 2)
Quarter: 2014Q1

REPORT INFORMATION
  Report Type: Spontaneous
  Country: US (occurrence: US)
  Receive Date: 20130219
  Receipt Date: 20140213
  Transmission Date: 20141002
  Serious: No
  Sender: FDA-Public Use
  Company Number: US-BRISTOL-MYERS SQUIBB COMPANY-17130147

PATIENT
  Age: 42 Year
  Sex: Female
  Weight: 96.6 kg

DRUGS (2)
  1. ABATACEPT SUBQ INJECTION 125MG/ML [Suspect]
     Indication: RHEUMATOID ARTHRITIS
     Dosage: PRESCRIPTION #:  6771816?LAST INJ:09NOV2012
     Route: 058
     Dates: start: 20121109
  2. REMICADE [Concomitant]

REACTIONS (4)
  - Injection site pain [Recovered/Resolved]
  - Nausea [Recovered/Resolved]
  - Headache [Recovered/Resolved]
  - Inappropriate schedule of drug administration [Unknown]
